FAERS Safety Report 10353930 (Version 2)
Quarter: 2014Q3

REPORT INFORMATION
  Report Type: Spontaneous
  Country: DE (occurrence: DE)
  Receive Date: 20140731
  Receipt Date: 20140825
  Transmission Date: 20150326
  Serious: Yes (Hospitalization, Other)
  Sender: FDA-Public Use
  Company Number: DE-JNJFOC-20140718349

PATIENT
  Age: 80 Year
  Sex: Female
  Weight: 95 kg

DRUGS (12)
  1. XARELTO [Suspect]
     Active Substance: RIVAROXABAN
     Indication: CEREBROVASCULAR ACCIDENT PROPHYLAXIS
     Route: 048
  2. SPIROGAMMA [Concomitant]
     Route: 065
  3. KALIUM VERLA (POTASSIUM CITRATE) [Concomitant]
     Route: 065
  4. SIMVASTATIN. [Concomitant]
     Active Substance: SIMVASTATIN
     Route: 065
  5. TORASEMID [Concomitant]
     Active Substance: TORSEMIDE
     Route: 065
  6. XARELTO [Suspect]
     Active Substance: RIVAROXABAN
     Indication: ATRIAL FIBRILLATION
     Route: 048
  7. FERRO-SANOL DUODENAL [Concomitant]
     Active Substance: FERROUS SULFATE\GLYCINE
     Route: 065
  8. NITRENDIPIN [Concomitant]
     Route: 065
  9. PANTOPRAZOLE [Concomitant]
     Active Substance: PANTOPRAZOLE SODIUM
     Route: 065
  10. SINTROM [Concomitant]
     Active Substance: ACENOCOUMAROL
     Route: 065
  11. METOPROLOL SUCCINATE. [Concomitant]
     Active Substance: METOPROLOL SUCCINATE
     Route: 065
  12. MAGNESIUM VERLA N [Concomitant]
     Route: 065

REACTIONS (4)
  - Chest pain [Recovering/Resolving]
  - Decreased activity [Recovering/Resolving]
  - Asthenia [Recovering/Resolving]
  - Haemoglobin decreased [Recovering/Resolving]

NARRATIVE: CASE EVENT DATE: 201406
